FAERS Safety Report 8445592-0 (Version None)
Quarter: 2012Q2

REPORT INFORMATION
  Report Type: 
  Country: None (occurrence: None)
  Receive Date: 20120618
  Receipt Date: 20120611
  Transmission Date: 20120825
  Serious: Yes (Other)
  Sender: FDA-Public Use
  Company Number: PHHY2012JP051345

PATIENT
  Age: 7 Year
  Sex: Male

DRUGS (2)
  1. CYCLOSPORINE [Suspect]
     Indication: CORD BLOOD TRANSPLANT THERAPY
     Route: 048
  2. METHOTREXATE [Concomitant]

REACTIONS (2)
  - THROMBOTIC MICROANGIOPATHY [None]
  - FOCAL SEGMENTAL GLOMERULOSCLEROSIS [None]
